FAERS Safety Report 9699010 (Version 1)
Quarter: 2013Q4

REPORT INFORMATION
  Report Type: Spontaneous
  Country: US (occurrence: None)
  Receive Date: 20131118
  Receipt Date: 20131118
  Transmission Date: 20140711
  Serious: Yes (Other)
  Sender: FDA-Public Use
  Company Number: 2013P1020912

PATIENT
  Age: 44 Year
  Sex: Female

DRUGS (1)
  1. CHLOROQUINE [Suspect]
     Route: 048

REACTIONS (10)
  - Intentional self-injury [None]
  - Abdominal pain [None]
  - Vomiting [None]
  - Hypotension [None]
  - Blood potassium decreased [None]
  - Blood magnesium decreased [None]
  - Electrocardiogram PR prolongation [None]
  - Electrocardiogram QRS complex prolonged [None]
  - Cinchonism [None]
  - Electrocardiogram QT prolonged [None]
